FAERS Safety Report 6320923-6 (Version None)
Quarter: 2009Q3

REPORT INFORMATION
  Report Type: 
  Country: None (occurrence: None)
  Receive Date: 20090822
  Receipt Date: 20081219
  Transmission Date: 20100115
  Serious: No
  Sender: FDA-Public Use
  Company Number: US-ABBOTT-08P-163-0493850-00

PATIENT
  Sex: Male

DRUGS (11)
  1. NIASPAN [Suspect]
     Indication: BLOOD CHOLESTEROL
     Dosage: EVERY NIGHT
     Dates: start: 20081206, end: 20081208
  2. ASPIRIN [Concomitant]
     Indication: DRUG USE FOR UNKNOWN INDICATION
  3. CORTAID 10 LOTION [Concomitant]
     Indication: RASH
  4. CALAMINE [Concomitant]
     Indication: RASH
  5. MULTI-VITAMINS [Concomitant]
     Indication: DRUG USE FOR UNKNOWN INDICATION
  6. ALLERGIES SHOT [Concomitant]
     Indication: HOUSE DUST ALLERGY
     Dosage: ROUTE: SHOT
  7. CRESTOR [Concomitant]
     Indication: DRUG USE FOR UNKNOWN INDICATION
  8. ALLEGRA D 24 HOUR [Concomitant]
     Indication: DRUG USE FOR UNKNOWN INDICATION
  9. SINGULAIR [Concomitant]
     Indication: DRUG USE FOR UNKNOWN INDICATION
  10. RHINOCORT [Concomitant]
     Indication: SINUS CONGESTION
  11. RHINOCORT [Concomitant]
     Indication: HYPERSENSITIVITY

REACTIONS (7)
  - FACIAL PAIN [None]
  - FLUSHING [None]
  - PAIN [None]
  - PRURITUS [None]
  - RASH [None]
  - RASH MACULAR [None]
  - SUNBURN [None]
